FAERS Safety Report 19175125 (Version 1)
Quarter: 2021Q2

REPORT INFORMATION
  Report Type: Spontaneous
  Country: US (occurrence: US)
  Receive Date: 20210423
  Receipt Date: 20210423
  Transmission Date: 20210717
  Serious: No
  Sender: FDA-Public Use
  Company Number: US-INCYTE CORPORATION-2021IN003334

PATIENT

DRUGS (2)
  1. JAKAFI [Suspect]
     Active Substance: RUXOLITINIB
     Indication: HYPOGAMMAGLOBULINAEMIA
     Dosage: 2.5 MILLIGRAM, BID (5MG TAB)
     Route: 048
     Dates: start: 202102
  2. HIZENTRA [Suspect]
     Active Substance: HUMAN IMMUNOGLOBULIN G
     Indication: PRODUCT USED FOR UNKNOWN INDICATION
     Dosage: UNK
     Route: 065

REACTIONS (4)
  - Injection site discomfort [Unknown]
  - Off label use [Unknown]
  - Wrong technique in product usage process [Unknown]
  - Injection site swelling [Unknown]

NARRATIVE: CASE EVENT DATE: 202102
